FAERS Safety Report 23228380 (Version 2)
Quarter: 2023Q4

REPORT INFORMATION
  Report Type: Spontaneous
  Country: US (occurrence: US)
  Receive Date: 20231125
  Receipt Date: 20231207
  Transmission Date: 20240110
  Serious: Yes (Hospitalization, Other)
  Sender: FDA-Public Use
  Company Number: US-LUPIN PHARMACEUTICALS INC.-2023-10451

PATIENT
  Age: 64 Year
  Sex: Female

DRUGS (2)
  1. NITROFURANTOIN [Suspect]
     Active Substance: NITROFURANTOIN
     Indication: Urinary tract infection
     Dosage: 50 MG, QD
     Route: 065
  2. NITROFURANTOIN [Suspect]
     Active Substance: NITROFURANTOIN
     Dosage: 50 MG, BID
     Route: 065

REACTIONS (5)
  - Drug-induced liver injury [Unknown]
  - Hepatic failure [Unknown]
  - Hepatitis acute [Unknown]
  - Hepatic necrosis [Unknown]
  - Coagulopathy [Unknown]
